FAERS Safety Report 5966220-X (Version None)
Quarter: 2008Q4

REPORT INFORMATION
  Report Type: 
  Country: None (occurrence: None)
  Receive Date: 20081125
  Receipt Date: 20081117
  Transmission Date: 20090506
  Serious: Yes (Hospitalization, Other)
  Sender: FDA-Public Use
  Company Number: US-AVENTIS-200817878US

PATIENT
  Sex: Female

DRUGS (3)
  1. LOVENOX [Suspect]
     Indication: THROMBOSIS PROPHYLAXIS
     Dosage: DOSE: UNK
     Route: 058
     Dates: start: 20080501, end: 20080101
  2. ASPIRIN [Concomitant]
     Indication: THROMBOSIS PROPHYLAXIS
  3. PLAVIX [Concomitant]
     Indication: THROMBOSIS PROPHYLAXIS
     Dosage: DOSE: UNK
     Dates: end: 20080501

REACTIONS (7)
  - ABORTION SPONTANEOUS [None]
  - BACK PAIN [None]
  - DRUG EXPOSURE DURING PREGNANCY [None]
  - HEADACHE [None]
  - PYREXIA [None]
  - SEPSIS [None]
  - TACHYCARDIA [None]
